FAERS Safety Report 9995781 (Version 1)
Quarter: 2014Q1

REPORT INFORMATION
  Report Type: Spontaneous
  Country: US (occurrence: None)
  Receive Date: 20140310
  Receipt Date: 20140310
  Transmission Date: 20141002
  Serious: Yes (Hospitalization)
  Sender: FDA-Public Use
  Company Number: None

PATIENT
  Age: 54 Year
  Sex: Female
  Weight: 100 kg

DRUGS (6)
  1. DEXTROSE 5% IN LACTATED RINGERS [Suspect]
     Dosage: ~800ML?ONCE/CONTINOUS?INTRAVENOUS
     Route: 042
     Dates: start: 20140305, end: 20140306
  2. ACETAMIOPHEN/HYDROCODONE [Concomitant]
  3. HYDROMORPHONE [Concomitant]
  4. METOCLOPRAMIDE [Concomitant]
  5. PANTOPRAZOLE [Concomitant]
  6. SODIUM CHLORIDE [Concomitant]

REACTIONS (5)
  - Dizziness [None]
  - Dizziness [None]
  - Blood pressure decreased [None]
  - Heart rate increased [None]
  - Product quality issue [None]
